FAERS Safety Report 4475881-6 (Version None)
Quarter: 2004Q4

REPORT INFORMATION
  Report Type: 
  Country: None (occurrence: None)
  Receive Date: 20041012
  Receipt Date: 20040928
  Transmission Date: 20050328
  Serious: Yes (Death)
  Sender: FDA-Public Use
  Company Number: 2004236406US

PATIENT
  Age: 60 Year
  Sex: Female

DRUGS (15)
  1. CELEBREX [Suspect]
     Indication: RHEUMATOID ARTHRITIS
     Dosage: 200 MG, BID,
     Dates: start: 19990805, end: 20010601
  2. PREDNISONE [Concomitant]
  3. HYDROCHLOROTHIAZIDE [Concomitant]
  4. MS CONTIN [Concomitant]
  5. MAVIK [Concomitant]
  6. NEURONTIN [Concomitant]
  7. AMITRIPTYLINE HCL [Concomitant]
  8. PROZAC [Concomitant]
  9. IMURAN [Concomitant]
  10. ASPIRIN [Concomitant]
  11. PERI-COLACE (DOCUSATE SODIUM) [Concomitant]
  12. ALTACE [Concomitant]
  13. XANAX [Concomitant]
  14. DARVOCET-N 100 [Concomitant]
  15. TYLENOL [Concomitant]

REACTIONS (3)
  - CARDIO-RESPIRATORY ARREST [None]
  - CEREBRAL ARTERY OCCLUSION [None]
  - CEREBROVASCULAR ACCIDENT [None]
